FAERS Safety Report 5971646-4 (Version None)
Quarter: 2008Q4

REPORT INFORMATION
  Report Type: 
  Country: None (occurrence: None)
  Receive Date: 20081201
  Receipt Date: 20081125
  Transmission Date: 20090506
  Serious: Yes (Other)
  Sender: FDA-Public Use
  Company Number: US-BAYER-200837043NA

PATIENT
  Age: 46 Year
  Sex: Female

DRUGS (1)
  1. AVELOX [Suspect]
     Indication: DRUG USE FOR UNKNOWN INDICATION
     Dosage: TOTAL DAILY DOSE: 400 MG  UNIT DOSE: 400 MG
     Dates: start: 20080820, end: 20080820

REACTIONS (7)
  - EYELID OEDEMA [None]
  - HYPERSENSITIVITY [None]
  - LIP SWELLING [None]
  - NASAL OEDEMA [None]
  - OEDEMA PERIPHERAL [None]
  - SKIN SWELLING [None]
  - URTICARIA [None]
